FAERS Safety Report 9796673 (Version 2)
Quarter: 2014Q1

REPORT INFORMATION
  Report Type: Spontaneous
  Country: FR (occurrence: FR)
  Receive Date: 20140103
  Receipt Date: 20140110
  Transmission Date: 20141002
  Serious: Yes (Hospitalization)
  Sender: FDA-Public Use
  Company Number: FR-TEVA-454295USA

PATIENT
  Age: 72 Year
  Sex: Male

DRUGS (12)
  1. LEVACT [Suspect]
     Indication: PRODUCT USED FOR UNKNOWN INDICATION
     Route: 041
     Dates: start: 201304, end: 20130910
  2. CORTANCYL [Suspect]
     Indication: PRODUCT USED FOR UNKNOWN INDICATION
     Dosage: 50 MILLIGRAM DAILY;
     Route: 048
     Dates: start: 201304, end: 20130910
  3. THALIDOMIDE [Suspect]
     Indication: PRODUCT USED FOR UNKNOWN INDICATION
     Route: 048
     Dates: start: 201304, end: 20130910
  4. IPERTEN [Concomitant]
     Dosage: 20 MILLIGRAM DAILY;
  5. PREVISCAN [Concomitant]
     Dates: start: 2011
  6. AMLOR [Concomitant]
     Dosage: 5 MILLIGRAM DAILY;
     Route: 048
     Dates: start: 201304, end: 20130910
  7. TRIATEC [Concomitant]
     Dosage: 5 MILLIGRAM DAILY;
  8. ATENOLOL [Concomitant]
     Dosage: 25  DAILY; MCI
  9. KARDEGIC [Concomitant]
     Dosage: 160 MILLIGRAM DAILY;
  10. TAHOR [Concomitant]
     Dosage: 20 MILLIGRAM DAILY;
  11. INEXIUM [Concomitant]
     Dosage: 20 MILLIGRAM DAILY;
  12. KAYEXALATE [Concomitant]
     Dosage: PER WEEK

REACTIONS (1)
  - Pulmonary embolism [Recovered/Resolved]
